FAERS Safety Report 7059550-4 (Version None)
Quarter: 2010Q4

REPORT INFORMATION
  Report Type: 
  Country: None (occurrence: None)
  Receive Date: 20101025
  Receipt Date: 20101012
  Transmission Date: 20110411
  Serious: Yes (Other)
  Sender: FDA-Public Use
  Company Number: PHHY2010JP20549

PATIENT
  Sex: Female
  Weight: 43 kg

DRUGS (11)
  1. ALISKIREN/AMOLODIPINE BESYLATE/HYDROCHLOROTHIAZIDE [Suspect]
     Indication: HYPERTENSION
     Dosage: 150 MG, ONCE EVERY MORNING
     Route: 048
     Dates: start: 20100107, end: 20100324
  2. ALISKIREN/AMOLODIPINE BESYLATE/HYDROCHLOROTHIAZIDE [Suspect]
     Dosage: 300 MG, DAILY
     Route: 048
     Dates: start: 20100325, end: 20100328
  3. RENIVACE [Concomitant]
     Indication: HYPERTENSION
     Dosage: 5 MG,UNK
     Route: 048
  4. CANDESARTAN CILEXETIL [Concomitant]
     Indication: HYPERTENSION
     Dosage: 12 MG, UNK
     Route: 048
  5. NITRODERM [Concomitant]
     Dosage: 25MG, UNK
  6. TENORMIN [Concomitant]
     Indication: HYPERTENSION
     Dosage: 25 MG, UNK
     Route: 048
  7. DOXAZOSIN MESYLATE [Concomitant]
     Indication: HYPERTENSION
     Dosage: 6MG, UNK
     Route: 048
  8. ADALAT CC [Concomitant]
     Indication: HYPERTENSION
     Dosage: 80MG, UNK
     Route: 048
  9. LENDORMIN [Concomitant]
     Dosage: 0.25MG, UNK
     Route: 048
  10. CALCIUM CARBONATE [Concomitant]
     Dosage: 1500MG, UNK
     Route: 048
  11. SODIUM PICOSULFATE [Concomitant]
     Route: 048

REACTIONS (2)
  - DRUG EFFECT DECREASED [None]
  - HALLUCINATIONS, MIXED [None]
